FAERS Safety Report 18328880 (Version 1)
Quarter: 2020Q3

REPORT INFORMATION
  Report Type: Spontaneous
  Country: US (occurrence: US)
  Receive Date: 20200930
  Receipt Date: 20200930
  Transmission Date: 20201103
  Serious: No
  Sender: FDA-Public Use
  Company Number: US-BIOGEN-2020BI00860002

PATIENT
  Age: 30 Year
  Sex: Female

DRUGS (3)
  1. TECFIDERA [Suspect]
     Active Substance: DIMETHYL FUMARATE
     Indication: MULTIPLE SCLEROSIS
     Route: 048
     Dates: start: 20200203, end: 20200209
  2. TECFIDERA [Suspect]
     Active Substance: DIMETHYL FUMARATE
     Route: 048
     Dates: start: 20200210
  3. TECFIDERA [Suspect]
     Active Substance: DIMETHYL FUMARATE
     Route: 065
     Dates: start: 20200129

REACTIONS (7)
  - Product dose omission in error [Recovered/Resolved]
  - Ulcer [Unknown]
  - Nausea [Unknown]
  - Flushing [Unknown]
  - Anxiety [Unknown]
  - Nervousness [Unknown]
  - Panic attack [Unknown]

NARRATIVE: CASE EVENT DATE: 20200203
